FAERS Safety Report 8520895-X (Version None)
Quarter: 2012Q3

REPORT INFORMATION
  Report Type: 
  Country: None (occurrence: None)
  Receive Date: 20120719
  Receipt Date: 20120712
  Transmission Date: 20120928
  Serious: Yes (Hospitalization)
  Sender: FDA-Public Use
  Company Number: US-BAYER-2012-071726

PATIENT
  Age: 47 Year
  Sex: Female
  Weight: 72 kg

DRUGS (8)
  1. PROVERA [Concomitant]
     Dosage: 10 MG, UNK
     Dates: start: 20060601
  2. IBUPROFEN [Concomitant]
     Dosage: 600 MG, TID
  3. TOPAMAX [Concomitant]
     Dosage: 125 MG, UNK
  4. SINGULAIR [Concomitant]
  5. ELECTROLYTE SOLUTIONS [Concomitant]
  6. QUININE SULFATE [Concomitant]
  7. YASMIN [Suspect]
  8. ZYRTEC [Concomitant]

REACTIONS (3)
  - THROMBOPHLEBITIS SUPERFICIAL [None]
  - PULMONARY EMBOLISM [None]
  - DEEP VEIN THROMBOSIS [None]
